FAERS Safety Report 20933011 (Version 1)
Quarter: 2022Q2

REPORT INFORMATION
  Report Type: Spontaneous
  Country: RO (occurrence: RO)
  Receive Date: 20220608
  Receipt Date: 20220608
  Transmission Date: 20220721
  Serious: Yes (Other)
  Sender: FDA-Public Use
  Company Number: RO-Accord-263530

PATIENT
  Age: 67 Year
  Sex: Male

DRUGS (13)
  1. OXALIPLATIN [Suspect]
     Active Substance: OXALIPLATIN
     Indication: Adenocarcinoma of colon
     Dosage: 130 MILLIGRAM/SQ. METER IN 500 ML GLUCOSE 5%, OVER 120 MINUTES REPEATED AFTER 21 DAYS
     Route: 042
  2. OXALIPLATIN [Suspect]
     Active Substance: OXALIPLATIN
     Indication: Prostate cancer
     Dosage: 85 MG/M2, CYCLIC (IN 500 ML GLUCOSE 5 PERCENT OVER 120 MINUTES)
     Route: 042
  3. CAPECITABINE [Suspect]
     Active Substance: CAPECITABINE
     Indication: Adenocarcinoma of colon
     Dosage: 1000 MILLIGRAM/SQ. METER, QD (DAYS 1-14, TABLETS OF 500 MG)
     Route: 048
  4. CAPECITABINE [Suspect]
     Active Substance: CAPECITABINE
     Indication: Prostate cancer
     Dosage: 1000 MILLIGRAM/SQ. METER, BID, DAYS 1-14  (12 HOURS)
     Route: 048
  5. CAPECITABINE [Suspect]
     Active Substance: CAPECITABINE
     Dosage: UNK
  6. LEUCOVORIN [Suspect]
     Active Substance: LEUCOVORIN
     Indication: Adenocarcinoma of colon
     Dosage: 400 MG/M2, CYCLIC (IN 250 ML GLUCOSE 5 PERCENT OVER 120 MINUTES)
     Route: 042
  7. LEUCOVORIN [Suspect]
     Active Substance: LEUCOVORIN
     Indication: Prostate cancer
     Dosage: UNK
  8. FLUOROURACIL [Suspect]
     Active Substance: FLUOROURACIL
     Indication: Adenocarcinoma of colon
     Dosage: 400 MG/M2, CYCLIC (OVER 10 MINUTES)
     Route: 042
  9. FLUOROURACIL [Suspect]
     Active Substance: FLUOROURACIL
     Indication: Prostate cancer
     Dosage: 2400 MG/M2, CYCLIC (OVER 46 HOURS)
     Route: 042
  10. PANITUMUMAB [Suspect]
     Active Substance: PANITUMUMAB
     Indication: Adenocarcinoma of colon
     Dosage: 6 MG/KG, CYCLIC (IN 100 ML SODIUM CHLORIDE 0.9 PERCENT OVER 60 MINUTES)
     Route: 042
  11. PANITUMUMAB [Suspect]
     Active Substance: PANITUMUMAB
     Indication: Prostate cancer
     Dosage: UNK
  12. LEUPROLIDE ACETATE [Concomitant]
     Active Substance: LEUPROLIDE ACETATE
     Dosage: 22.5 MILLIGRAM, ONE INJECTION FOR THREE MONTHS
     Route: 058
  13. BICALUTAMIDE [Concomitant]
     Active Substance: BICALUTAMIDE
     Dosage: 50 MILLIGRAM, QD
     Route: 048

REACTIONS (2)
  - Disease recurrence [Unknown]
  - Thrombocytopenia [Unknown]
